FAERS Safety Report 9009057 (Version 1)
Quarter: 2013Q1

REPORT INFORMATION
  Report Type: Spontaneous
  Country: DK (occurrence: FR)
  Receive Date: 20130111
  Receipt Date: 20130111
  Transmission Date: 20140127
  Serious: Yes (Hospitalization)
  Sender: FDA-Public Use
  Company Number: FR-FRI-1000041551

PATIENT
  Age: 80 Year
  Sex: Female
  Weight: 56 kg

DRUGS (8)
  1. ESCITALOPRAM [Suspect]
     Indication: DEPRESSION
     Dosage: 5 MG
     Route: 048
     Dates: start: 20121106, end: 20121116
  2. OMEPRAZOLE [Suspect]
     Dosage: 20 MG
     Route: 048
  3. HYTACAND [Suspect]
     Dosage: 1 DF
     Route: 048
     Dates: end: 20121116
  4. LOXEN [Concomitant]
     Dosage: 100 MG
  5. TENORMINE [Concomitant]
     Dosage: 100 MG
  6. SIMVASTATIN [Concomitant]
     Dosage: 20 MG
  7. GLICLAZIDE [Concomitant]
     Dosage: 1 DF
  8. SERESTA [Concomitant]

REACTIONS (4)
  - Hyponatraemia [Recovering/Resolving]
  - Hypokalaemia [Recovered/Resolved]
  - Confusional state [Recovered/Resolved]
  - Drug interaction [Recovered/Resolved]
